FAERS Safety Report 14496916 (Version 2)
Quarter: 2018Q1

REPORT INFORMATION
  Report Type: Spontaneous
  Country: US (occurrence: US)
  Receive Date: 20180207
  Receipt Date: 20180221
  Transmission Date: 20180509
  Serious: Yes (Other)
  Sender: FDA-Public Use
  Company Number: US-PFIZER INC-2018054139

PATIENT
  Age: 55 Year
  Sex: Female
  Weight: 72.12 kg

DRUGS (2)
  1. LYRICA [Suspect]
     Active Substance: PREGABALIN
     Indication: FIBROMYALGIA
     Dosage: 300 MG, DAILY (THREE TIMES A DAY)
  2. ATIVAN [Concomitant]
     Active Substance: LORAZEPAM
     Indication: ANXIETY
     Dosage: 1 MG, 3X/DAY

REACTIONS (4)
  - Nausea [Recovering/Resolving]
  - Gastric ulcer [Unknown]
  - Weight decreased [Not Recovered/Not Resolved]
  - Abdominal pain upper [Recovering/Resolving]

NARRATIVE: CASE EVENT DATE: 20171212
